FAERS Safety Report 7964674-0 (Version None)
Quarter: 2011Q4

REPORT INFORMATION
  Report Type: 
  Country: None (occurrence: None)
  Receive Date: 20111208
  Receipt Date: 20111128
  Transmission Date: 20120403
  Serious: Yes (Hospitalization, Other)
  Sender: FDA-Public Use
  Company Number: DK-JNJFOC-20100906912

PATIENT
  Sex: Male
  Weight: 87.7 kg

DRUGS (2)
  1. REMICADE [Suspect]
     Indication: COLITIS ULCERATIVE
     Route: 042
     Dates: start: 20100106, end: 20100110
  2. HUMIRA [Suspect]
     Indication: COLITIS ULCERATIVE
     Route: 058

REACTIONS (5)
  - ARTHRITIS REACTIVE [None]
  - RESECTION OF RECTUM [None]
  - SURGERY [None]
  - INTESTINAL ANASTOMOSIS [None]
  - PELVIC ABSCESS [None]
